FAERS Safety Report 5590997-9 (Version None)
Quarter: 2007Q4

REPORT INFORMATION
  Report Type: 
  Country: None (occurrence: None)
  Receive Date: 20071212
  Receipt Date: 20070803
  Transmission Date: 20080405
  Serious: Yes (Other)
  Sender: FDA-Public Use
  Company Number: USA-2007-0028690

PATIENT
  Sex: Male

DRUGS (1)
  1. OXYCONTIN [Suspect]
     Indication: PAIN
     Dosage: BID, ORAL
     Route: 048
     Dates: start: 20010101

REACTIONS (7)
  - DRUG DEPENDENCE [None]
  - DRUG TOLERANCE [None]
  - FEELING ABNORMAL [None]
  - FURUNCLE [None]
  - RASH [None]
  - THERAPEUTIC RESPONSE DECREASED [None]
  - WITHDRAWAL SYNDROME [None]
